FAERS Safety Report 6917576-2 (Version None)
Quarter: 2010Q3

REPORT INFORMATION
  Report Type: 
  Country: None (occurrence: None)
  Receive Date: 20100810
  Receipt Date: 20100806
  Transmission Date: 20110219
  Serious: Yes (Other)
  Sender: FDA-Public Use
  Company Number: US-BRISTOL-MYERS SQUIBB COMPANY-15224694

PATIENT
  Age: 61 Year
  Sex: Female

DRUGS (4)
  1. IXEMPRA KIT [Suspect]
     Indication: BREAST CANCER
     Dosage: 3 WEEKS ON AND 1 WEEK OFF
     Dates: start: 20100628
  2. CARBOPLATIN [Suspect]
     Indication: BREAST CANCER
  3. DILANTIN [Suspect]
     Indication: CONVULSION
  4. METOPROLOL TARTRATE [Concomitant]

REACTIONS (1)
  - CONVULSION [None]
